FAERS Safety Report 12647238 (Version 2)
Quarter: 2016Q4

REPORT INFORMATION
  Report Type: Spontaneous
  Country: US (occurrence: US)
  Receive Date: 20160812
  Receipt Date: 20161020
  Transmission Date: 20170207
  Serious: Yes (Other)
  Sender: FDA-Public Use
  Company Number: US-SUN PHARMACEUTICAL INDUSTRIES LTD-2016US-121583

PATIENT
  Age: 58 Year
  Sex: Female

DRUGS (2)
  1. IMATINIB [Suspect]
     Active Substance: IMATINIB
     Indication: CHRONIC MYELOID LEUKAEMIA
     Dosage: 3 DF, QD
     Route: 048
     Dates: start: 20160718
  2. IMATINIB [Suspect]
     Active Substance: IMATINIB
     Indication: CHRONIC MYELOID LEUKAEMIA
     Dosage: 1 DF, QD
     Route: 048
     Dates: start: 201607, end: 201607

REACTIONS (10)
  - Weight increased [Not Recovered/Not Resolved]
  - Blindness [Not Recovered/Not Resolved]
  - Vision blurred [Unknown]
  - Oedema peripheral [Not Recovered/Not Resolved]
  - White blood cell count increased [Unknown]
  - Eye haemorrhage [Not Recovered/Not Resolved]
  - Condition aggravated [Unknown]
  - Arthralgia [Not Recovered/Not Resolved]
  - Abasia [Not Recovered/Not Resolved]
  - Eye haemorrhage [Unknown]

NARRATIVE: CASE EVENT DATE: 2016
